FAERS Safety Report 8399329-4 (Version None)
Quarter: 2012Q2

REPORT INFORMATION
  Report Type: 
  Country: None (occurrence: None)
  Receive Date: 20120525
  Receipt Date: 20120514
  Transmission Date: 20120825
  Serious: Yes (Other)
  Sender: FDA-Public Use
  Company Number: 2012A006225

PATIENT
  Age: 28 Year
  Sex: Male

DRUGS (1)
  1. ALPRAZOLAM [Suspect]
     Indication: ANXIETY
     Dosage: 12 MG;X1

REACTIONS (5)
  - SOMNOLENCE [None]
  - INCORRECT DOSE ADMINISTERED [None]
  - SINUS BRADYCARDIA [None]
  - ATRIOVENTRICULAR BLOCK FIRST DEGREE [None]
  - DEPRESSED LEVEL OF CONSCIOUSNESS [None]
